FAERS Safety Report 17226076 (Version 2)
Quarter: 2020Q1

REPORT INFORMATION
  Report Type: Spontaneous
  Country: TR (occurrence: TR)
  Receive Date: 20200102
  Receipt Date: 20200213
  Transmission Date: 20200409
  Serious: Yes (Hospitalization, Other)
  Sender: FDA-Public Use
  Company Number: TR-PFIZER INC-2019561054

PATIENT

DRUGS (1)
  1. GENOTROPIN GOQUICK [Suspect]
     Active Substance: SOMATROPIN
     Dosage: 0.85 MG, CYCLIC (6 TIMES A WEEK)
     Dates: end: 20191226

REACTIONS (5)
  - Oculogyric crisis [Unknown]
  - Product dose omission [Unknown]
  - Poor quality device used [Unknown]
  - Device malfunction [Unknown]
  - Visual impairment [Recovered/Resolved]

NARRATIVE: CASE EVENT DATE: 20191101
